FAERS Safety Report 18920186 (Version 1)
Quarter: 2021Q1

REPORT INFORMATION
  Report Type: Spontaneous
  Country: US (occurrence: US)
  Receive Date: 20210222
  Receipt Date: 20210222
  Transmission Date: 20210420
  Serious: No
  Sender: FDA-Public Use
  Company Number: US-AKCEA THERAPEUTICS-2020IS001641

PATIENT
  Age: 70 Year
  Sex: Female

DRUGS (3)
  1. TEGSEDI [Suspect]
     Active Substance: INOTERSEN SODIUM
     Indication: HEREDITARY NEUROPATHIC AMYLOIDOSIS
     Route: 058
  2. ASPIRIN /00002701/ [Concomitant]
     Active Substance: ASPIRIN
     Route: 065
  3. ISSD (INTEGRATED SYRINGE SAFETY DEVICE) [Suspect]
     Active Substance: DEVICE

REACTIONS (8)
  - Glomerular filtration rate decreased [Unknown]
  - Bacterial test positive [Unknown]
  - Injection site bruising [Unknown]
  - Blood creatine increased [Unknown]
  - Platelet count increased [Unknown]
  - Injection site pruritus [Unknown]
  - Protein urine present [Unknown]
  - Injection site pain [Unknown]
